FAERS Safety Report 9527589 (Version 1)
Quarter: 2013Q1

REPORT INFORMATION
  Report Type: Spontaneous
  Country: US (occurrence: None)
  Receive Date: 20130314
  Receipt Date: 20130314
  Transmission Date: 20140127
  Serious: Yes (Other)
  Sender: FDA-Public Use
  Company Number: 1212USA002010

PATIENT
  Sex: Male

DRUGS (3)
  1. VICTRELIS [Suspect]
     Indication: HEPATITIS C
     Dates: start: 201209
  2. RIBAVIRIN (RIBAVIRIN) CAPSULE [Suspect]
  3. PEGINTERFERON ALFA-2B [Suspect]

REACTIONS (1)
  - Blood triglycerides increased [None]
